FAERS Safety Report 6105490-4 (Version None)
Quarter: 2009Q1

REPORT INFORMATION
  Report Type: 
  Country: None (occurrence: None)
  Receive Date: 20090306
  Receipt Date: 20090227
  Transmission Date: 20090719
  Serious: Yes (Hospitalization)
  Sender: FDA-Public Use
  Company Number: A0771641A

PATIENT
  Age: 51 Year
  Sex: Male
  Weight: 95.5 kg

DRUGS (8)
  1. AVANDIA [Suspect]
     Indication: DIABETES MELLITUS
     Dosage: 4MG PER DAY
     Route: 048
     Dates: start: 20050301, end: 20080401
  2. AVANDAMET [Suspect]
     Indication: DIABETES MELLITUS
     Route: 048
     Dates: start: 20040101, end: 20050301
  3. ACTOS [Concomitant]
  4. GLUCOPHAGE [Concomitant]
  5. METFORMIN [Concomitant]
  6. INSULIN [Concomitant]
  7. AMARYL [Concomitant]
  8. EFFEXOR [Concomitant]

REACTIONS (2)
  - CARDIAC FAILURE CONGESTIVE [None]
  - ROAD TRAFFIC ACCIDENT [None]
